FAERS Safety Report 24362202 (Version 2)
Quarter: 2024Q4

REPORT INFORMATION
  Report Type: Spontaneous
  Country: US (occurrence: US)
  Receive Date: 20240925
  Receipt Date: 20241015
  Transmission Date: 20250115
  Serious: No
  Sender: TOLMAR
  Company Number: US-TOLMAR, INC.-24US052332

PATIENT
  Age: 7 Year
  Sex: Female
  Weight: 34.921 kg

DRUGS (3)
  1. FENSOLVI [Suspect]
     Active Substance: LEUPROLIDE ACETATE
     Indication: Precocious puberty
     Dosage: 45 MILLIGRAM, Q 6 MONTH
     Route: 058
     Dates: start: 20230825
  2. FENSOLVI [Suspect]
     Active Substance: LEUPROLIDE ACETATE
     Dosage: 45 MILLIGRAM, Q 6 MONTH
     Route: 058
     Dates: start: 20240223
  3. DEVICE [Suspect]
     Active Substance: DEVICE
     Indication: Precocious puberty
     Dosage: UNK

REACTIONS (2)
  - Fear of injection [Unknown]
  - Injection site pain [Recovered/Resolved]

NARRATIVE: CASE EVENT DATE: 20230825
